FAERS Safety Report 15350540 (Version 2)
Quarter: 2018Q3

REPORT INFORMATION
  Report Type: Report from Study
  Country: DE (occurrence: DE)
  Receive Date: 20180905
  Receipt Date: 20180906
  Transmission Date: 20181010
  Serious: Yes (Death, Life-Threatening, Hospitalization, Other)
  Sender: FDA-Public Use
  Company Number: DE-ROCHE-2178741

PATIENT
  Age: 62 Year
  Sex: Male
  Weight: 106 kg

DRUGS (2)
  1. VEMURAFENIB. [Suspect]
     Active Substance: VEMURAFENIB
     Indication: MALIGNANT MELANOMA
     Route: 048
     Dates: start: 20180821, end: 20180830
  2. COBIMETINIB. [Suspect]
     Active Substance: COBIMETINIB
     Indication: MALIGNANT MELANOMA
     Route: 048
     Dates: start: 20180821, end: 20180830

REACTIONS (7)
  - Multiple organ dysfunction syndrome [Fatal]
  - Rhabdomyolysis [Not Recovered/Not Resolved]
  - Dermatitis exfoliative generalised [Not Recovered/Not Resolved]
  - Sepsis [Fatal]
  - Liver disorder [Not Recovered/Not Resolved]
  - Acute kidney injury [Not Recovered/Not Resolved]
  - Myocarditis [Unknown]

NARRATIVE: CASE EVENT DATE: 20180830
